FAERS Safety Report 14823712 (Version 6)
Quarter: 2019Q4

REPORT INFORMATION
  Report Type: Spontaneous
  Country: DE (occurrence: DE)
  Receive Date: 20180428
  Receipt Date: 20191121
  Transmission Date: 20200122
  Serious: Yes (Hospitalization, Other)
  Sender: FDA-Public Use
  Company Number: DE-AUROBINDO-AUR-APL-2018-022851

PATIENT
  Age: 37 Year
  Sex: Female

DRUGS (19)
  1. RISPERIDONE. [Interacting]
     Active Substance: RISPERIDONE
     Indication: MENTAL DISORDER
  2. PREGABALIN. [Concomitant]
     Active Substance: PREGABALIN
     Indication: PANIC DISORDER
     Dosage: IN THE EVENING
     Route: 016
  3. PREGABALIN. [Suspect]
     Active Substance: PREGABALIN
     Indication: DEPRESSION
  4. PREGABALIN. [Suspect]
     Active Substance: PREGABALIN
     Indication: PANIC DISORDER
  5. RISPERIDONE. [Interacting]
     Active Substance: RISPERIDONE
     Indication: NEGATIVE THOUGHTS
     Dosage: 0.5 MG, UNK (FOR 10 DAYS)
     Route: 065
  6. RISPERIDONE. [Interacting]
     Active Substance: RISPERIDONE
     Indication: MERYCISM
  7. PREGABALIN. [Concomitant]
     Active Substance: PREGABALIN
     Indication: DEPRESSION
  8. ESCITALOPRAM [Interacting]
     Active Substance: ESCITALOPRAM OXALATE
     Indication: DEPRESSION
     Dosage: 20 MILLIGRAM, DAILY (INCREASED TO 20 MG IN MORNING)
     Route: 048
  9. ESCITALOPRAM [Interacting]
     Active Substance: ESCITALOPRAM OXALATE
     Indication: PANIC DISORDER
  10. RISPERIDONE. [Interacting]
     Active Substance: RISPERIDONE
     Indication: BEHAVIOUR DISORDER
  11. OPIPRAMOL [Concomitant]
     Active Substance: OPIPRAMOL
     Indication: PRODUCT USED FOR UNKNOWN INDICATION
     Dosage: IN CRISIS SITUATIONS WITH TEMPORARY EFFECT ()
     Route: 065
  12. LORAZEPAM. [Concomitant]
     Active Substance: LORAZEPAM
     Indication: PRODUCT USED FOR UNKNOWN INDICATION
     Dosage: IN CRISIS SITUATIONS WITH TEMPORARY EFFECT
     Route: 065
  13. PREGABALIN. [Suspect]
     Active Substance: PREGABALIN
     Indication: GENERALISED ANXIETY DISORDER
     Dosage: (EVENING DOSE)100 MILLIGRAM
     Route: 048
  14. ARIPIPRAZOLE. [Interacting]
     Active Substance: ARIPIPRAZOLE
     Indication: NEGATIVE THOUGHTS
     Dosage: 5 MILLIGRAM, ONCE A DAY
     Route: 065
  15. RISPERIDONE. [Interacting]
     Active Substance: RISPERIDONE
     Indication: DELIRIUM
  16. PREGABALIN. [Concomitant]
     Active Substance: PREGABALIN
     Indication: GENERALISED ANXIETY DISORDER
     Dosage: 100 MILLIGRAM, ONCE A DAY
     Route: 065
  17. ESCITALOPRAM [Suspect]
     Active Substance: ESCITALOPRAM OXALATE
     Indication: GENERALISED ANXIETY DISORDER
     Dosage: 15 MILLIGRAM, DAILY (REDUCED)
     Route: 065
  18. PROMETHAZINE [Concomitant]
     Active Substance: PROMETHAZINE HYDROCHLORIDE
     Indication: PRODUCT USED FOR UNKNOWN INDICATION
     Dosage: UNK
     Route: 065
  19. ATORVASTATIN [Concomitant]
     Active Substance: ATORVASTATIN
     Indication: HYPERLIPIDAEMIA
     Dosage: UNK
     Route: 065

REACTIONS (13)
  - Haematoma [Recovered/Resolved]
  - Drug ineffective [Unknown]
  - Menometrorrhagia [Recovered/Resolved]
  - Respiratory tract infection [Unknown]
  - Restlessness [Unknown]
  - Drug interaction [Recovered/Resolved]
  - Menorrhagia [Recovered/Resolved]
  - Delirium [Unknown]
  - Sleep disorder [Unknown]
  - Condition aggravated [Recovered/Resolved]
  - Thinking abnormal [Unknown]
  - Insomnia [Unknown]
  - Haemorrhage [Unknown]
